FAERS Safety Report 14170885 (Version 1)
Quarter: 2017Q4

REPORT INFORMATION
  Report Type: Report from Study
  Country: JP (occurrence: JP)
  Receive Date: 20171108
  Receipt Date: 20171108
  Transmission Date: 20180321
  Serious: Yes (Hospitalization)
  Sender: FDA-Public Use
  Company Number: JP-DSJP-DSJ-2017-129340

PATIENT

DRUGS (15)
  1. FEBURIC [Concomitant]
     Active Substance: FEBUXOSTAT
     Dosage: 10MG/DAY
     Route: 048
     Dates: start: 20170717
  2. SPIRONOLACTONE. [Concomitant]
     Active Substance: SPIRONOLACTONE
     Dosage: 50MG/DAY
     Route: 048
     Dates: start: 20170716
  3. HEPARIN [Concomitant]
     Active Substance: HEPARIN SODIUM
     Dosage: 10000IU/DAY
     Route: 042
     Dates: start: 20170711, end: 20170728
  4. WARFARIN                           /00014803/ [Concomitant]
     Active Substance: WARFARIN
     Dosage: 2MG/DAY
     Route: 048
     Dates: start: 20170720, end: 20170803
  5. CRESTOR [Concomitant]
     Active Substance: ROSUVASTATIN CALCIUM
     Dosage: 5MG/DAY
     Route: 048
     Dates: start: 20160330
  6. FUROSEMIDE. [Concomitant]
     Active Substance: FUROSEMIDE
     Dosage: 40MG/DAY
     Route: 048
     Dates: start: 20170716
  7. PLAVIX [Concomitant]
     Active Substance: CLOPIDOGREL BISULFATE
     Dosage: 75MG/DAY
     Route: 048
     Dates: end: 20160404
  8. HEPARIN [Concomitant]
     Active Substance: HEPARIN SODIUM
     Dosage: 10000IU/DAY
     Route: 042
     Dates: start: 20160329, end: 20160404
  9. EDOXABAN [Suspect]
     Active Substance: EDOXABAN TOSYLATE
     Indication: ATRIAL FIBRILLATION
     Dosage: 30 MG, QD
     Route: 048
     Dates: start: 20160405, end: 20170710
  10. EDARAVONE [Concomitant]
     Active Substance: EDARAVONE
     Dosage: 60MG/DAY
     Route: 042
     Dates: start: 20160329, end: 20160405
  11. LANSOPRAZOLE. [Concomitant]
     Active Substance: LANSOPRAZOLE
     Dosage: 30MG/DAY
     Route: 048
     Dates: start: 20160330
  12. SAMSCA [Concomitant]
     Active Substance: TOLVAPTAN
     Dosage: 7.5MG/DAY
     Route: 048
     Dates: start: 20170712
  13. CALFINA [Concomitant]
     Active Substance: ALFACALCIDOL
     Dosage: 0.5UG/DAY
     Route: 048
  14. HEPARIN [Concomitant]
     Active Substance: HEPARIN SODIUM
     Dosage: 10000IU/DAY
     Route: 042
     Dates: start: 20170807
  15. BISOPROLOL FUMARATE. [Concomitant]
     Active Substance: BISOPROLOL FUMARATE
     Dosage: 5MG/DAY
     Route: 048
     Dates: start: 20170709

REACTIONS (3)
  - Acute kidney injury [Recovering/Resolving]
  - Blood urine present [Recovered/Resolved]
  - Cardiac failure congestive [Recovered/Resolved]

NARRATIVE: CASE EVENT DATE: 20170315
